FAERS Safety Report 6072056-4 (Version None)
Quarter: 2009Q1

REPORT INFORMATION
  Report Type: 
  Country: None (occurrence: None)
  Receive Date: 20090205
  Receipt Date: 20090205
  Transmission Date: 20090719
  Serious: Yes (Life-Threatening)
  Sender: FDA-Public Use
  Company Number: None

PATIENT
  Age: 32 Year
  Sex: Female
  Weight: 81.6475 kg

DRUGS (4)
  1. LUTERA LEVONORGESTREL 0.1, ETHYINYL .02 WATSON PHARMA [Suspect]
     Indication: CONTRACEPTION
     Dosage: 0.1 Q.D. PO
     Route: 048
     Dates: start: 20080201, end: 20081201
  2. LUTERA LEVONORGESTREL 0.1, ETHYINYL .02 WATSON PHARMA [Suspect]
     Indication: HAEMORRHAGE
     Dosage: 0.1 Q.D. PO
     Route: 048
     Dates: start: 20080201, end: 20081201
  3. IMOTREX [Concomitant]
  4. TREXIMET [Concomitant]

REACTIONS (9)
  - ANXIETY [None]
  - APHASIA [None]
  - AURA [None]
  - DIZZINESS [None]
  - HYPOAESTHESIA [None]
  - HYPOAESTHESIA ORAL [None]
  - MIGRAINE [None]
  - VISION BLURRED [None]
  - VISUAL IMPAIRMENT [None]
